FAERS Safety Report 11935130 (Version 1)
Quarter: 2016Q1

REPORT INFORMATION
  Report Type: Spontaneous
  Country: CN (occurrence: CN)
  Receive Date: 20160121
  Receipt Date: 20160121
  Transmission Date: 20160526
  Serious: Yes (Other)
  Sender: FDA-Public Use
  Company Number: CN-PFIZER INC-2016025310

PATIENT
  Age: 70 Year
  Sex: Female
  Weight: 70 kg

DRUGS (2)
  1. VFEND [Suspect]
     Active Substance: VORICONAZOLE
     Indication: GASTROINTESTINAL FUNGAL INFECTION
     Dosage: 0.2 G, 2X/DAY
     Route: 048
     Dates: start: 20150611, end: 20150613
  2. VFEND [Suspect]
     Active Substance: VORICONAZOLE
     Indication: CANDIDA INFECTION
     Dosage: 0.2 G, 1X/DAY
     Route: 048
     Dates: start: 20150614, end: 20150618

REACTIONS (2)
  - Hallucination [Recovered/Resolved]
  - Disorganised speech [Recovered/Resolved]

NARRATIVE: CASE EVENT DATE: 20150617
